FAERS Safety Report 5670322-5 (Version None)
Quarter: 2008Q1

REPORT INFORMATION
  Report Type: 
  Country: None (occurrence: None)
  Receive Date: 20080314
  Receipt Date: 20080314
  Transmission Date: 20080703
  Serious: Yes (Hospitalization)
  Sender: FDA-Public Use
  Company Number: None

PATIENT
  Age: 18 Year
  Sex: Male
  Weight: 61.2356 kg

DRUGS (1)
  1. ABILIFY [Suspect]
     Indication: AUTISM
     Dosage: 7.5MG ONCE A DAY SL
     Route: 060
     Dates: start: 20080122, end: 20080211

REACTIONS (9)
  - ABNORMAL BEHAVIOUR [None]
  - CHROMATURIA [None]
  - DRUG INEFFECTIVE [None]
  - MOANING [None]
  - MYOGLOBIN URINE PRESENT [None]
  - ORAL INTAKE REDUCED [None]
  - RENAL DISORDER [None]
  - SCREAMING [None]
  - SELF INJURIOUS BEHAVIOUR [None]
